FAERS Safety Report 6156226-2 (Version None)
Quarter: 2009Q2

REPORT INFORMATION
  Report Type: 
  Country: None (occurrence: None)
  Receive Date: 20090410
  Receipt Date: 20090410
  Transmission Date: 20091009
  Serious: Yes (Other)
  Sender: FDA-Public Use
  Company Number: None

PATIENT
  Age: 9 Year
  Sex: Male
  Weight: 28.5766 kg

DRUGS (2)
  1. RISPERIDONE [Suspect]
     Indication: ABNORMAL BEHAVIOUR
     Dosage: 0.25 MG PO
     Route: 048
     Dates: start: 20081001, end: 20081101
  2. RISPERIDONE [Suspect]
     Indication: ATTENTION DEFICIT/HYPERACTIVITY DISORDER
     Dosage: 0.25 MG PO
     Route: 048
     Dates: start: 20081001, end: 20081101

REACTIONS (2)
  - DRUG INEFFECTIVE [None]
  - THERAPEUTIC RESPONSE UNEXPECTED WITH DRUG SUBSTITUTION [None]
